FAERS Safety Report 11918647 (Version 2)
Quarter: 2016Q1

REPORT INFORMATION
  Report Type: Spontaneous
  Country: FI (occurrence: FI)
  Receive Date: 20160115
  Receipt Date: 20160115
  Transmission Date: 20160526
  Serious: Yes (Life-Threatening, Hospitalization, Other)
  Sender: FDA-Public Use
  Company Number: FI-ALEMBIC PHARMACUETICALS LIMITED-2015SCAL000387

PATIENT
  Age: 19 Year
  Sex: Female
  Weight: 55 kg

DRUGS (2)
  1. VENLAFAXINE HYDROCHLORIDE. [Suspect]
     Active Substance: VENLAFAXINE HYDROCHLORIDE
     Indication: DEPRESSION
     Dosage: UNK
     Route: 048
  2. AMITRIPTYLINE [Suspect]
     Active Substance: AMITRIPTYLINE
     Indication: DEPRESSION
     Route: 048

REACTIONS (14)
  - Toxicity to various agents [Recovering/Resolving]
  - Confusional state [Unknown]
  - Amnesia [Not Recovered/Not Resolved]
  - Electrocardiogram QRS complex prolonged [Recovered/Resolved]
  - Electrocardiogram QT prolonged [Recovered/Resolved]
  - Generalised tonic-clonic seizure [Unknown]
  - Pyrexia [Unknown]
  - Poisoning deliberate [Recovering/Resolving]
  - Incoherent [Unknown]
  - Mydriasis [Unknown]
  - Agitation [Unknown]
  - Cardiac arrest [Recovering/Resolving]
  - Polyuria [Unknown]
  - Blood potassium decreased [Unknown]
